FAERS Safety Report 5916560-5 (Version None)
Quarter: 2008Q4

REPORT INFORMATION
  Report Type: 
  Country: None (occurrence: None)
  Receive Date: 20081013
  Receipt Date: 20081008
  Transmission Date: 20090506
  Serious: Yes (Life-Threatening, Other)
  Sender: FDA-Public Use
  Company Number: FR-BRISTOL-MYERS SQUIBB COMPANY-14099097

PATIENT

DRUGS (4)
  1. CETUXIMAB [Suspect]
     Indication: COLON CANCER
     Dosage: FIRST INFUSION: 19-SEP-2007 MOST RECENT INFUSION: 03-OCT-2007 DISCONTINUED: OCT-2007
     Route: 042
     Dates: start: 20070919, end: 20071003
  2. OXALIPLATIN [Suspect]
     Indication: COLON CANCER
     Dosage: FIRST INFUSION: 19-SEP-2007 MOST RECENT INFUSION: 30-JAN-2008
     Route: 042
     Dates: start: 20070919
  3. FLUOROURACIL [Suspect]
     Indication: COLON CANCER
     Dosage: FIRST INFUSION: 19-SEP-2007 MOST RECENT INFUSION: 16-JAN-2008
     Route: 042
     Dates: start: 20070919
  4. LEUCOVORIN CALCIUM [Suspect]
     Indication: COLON CANCER
     Dosage: FIRST INFUSION: 19-SEP-2007 MOST RECENT INFUSION: 30-JAN-2008
     Route: 042
     Dates: start: 20070919

REACTIONS (2)
  - ANGIOEDEMA [None]
  - INFUSION RELATED REACTION [None]
